FAERS Safety Report 5360062-4 (Version None)
Quarter: 2007Q2

REPORT INFORMATION
  Report Type: 
  Country: None (occurrence: None)
  Receive Date: 20070618
  Receipt Date: 20060421
  Transmission Date: 20071010
  Serious: No
  Sender: FDA-Public Use
  Company Number: US-ASTRAZENECA-2006UW07176

PATIENT
  Age: 69 Year
  Sex: Female
  Weight: 72.5 kg

DRUGS (2)
  1. FASLODEX [Suspect]
     Indication: BREAST CANCER
     Route: 030
  2. DILAUDID [Concomitant]

REACTIONS (1)
  - MUSCLE STRAIN [None]
